FAERS Safety Report 15378515 (Version 1)
Quarter: 2018Q3

REPORT INFORMATION
  Report Type: Spontaneous
  Country: JP (occurrence: JP)
  Receive Date: 20180913
  Receipt Date: 20180913
  Transmission Date: 20181010
  Serious: Yes (Hospitalization)
  Sender: FDA-Public Use
  Company Number: GXJP2018JP001428

PATIENT
  Sex: Male

DRUGS (4)
  1. RIFAMPICIN CAPSULES [Suspect]
     Active Substance: RIFAMPIN
     Indication: PERITONEAL TUBERCULOSIS
     Dosage: UNK
     Route: 048
  2. ISONIAZID. [Suspect]
     Active Substance: ISONIAZID
     Indication: PERITONEAL TUBERCULOSIS
     Dosage: UNK
     Route: 048
  3. ETHAMBUTOL [Suspect]
     Active Substance: ETHAMBUTOL HYDROCHLORIDE
     Indication: PERITONEAL TUBERCULOSIS
     Dosage: UNK
     Route: 048
  4. PYRAZINAMIDE. [Suspect]
     Active Substance: PYRAZINAMIDE
     Indication: PERITONEAL TUBERCULOSIS
     Dosage: UNK
     Route: 048

REACTIONS (7)
  - Left ventricular dysfunction [Recovered/Resolved]
  - Loss of consciousness [Unknown]
  - Eosinophil count increased [Recovered/Resolved]
  - Cardiac failure [Recovered/Resolved]
  - Long QT syndrome [Recovered/Resolved]
  - Torsade de pointes [Unknown]
  - Eosinophilic myocarditis [Recovering/Resolving]
